FAERS Safety Report 10687740 (Version 4)
Quarter: 2015Q1

REPORT INFORMATION
  Report Type: Spontaneous
  Country: US (occurrence: US)
  Receive Date: 20150102
  Receipt Date: 20150130
  Transmission Date: 20150720
  Serious: No
  Sender: FDA-Public Use
  Company Number: US-009507513-1412USA010278

PATIENT
  Age: 34 Year
  Sex: Female
  Weight: 84.35 kg

DRUGS (8)
  1. NORVASC [Concomitant]
     Active Substance: AMLODIPINE BESYLATE
     Indication: HYPERTENSION
     Dosage: TOTAL DAILY DOSE: 75 MG
     Route: 048
     Dates: start: 201405
  2. NEXPLANON [Suspect]
     Active Substance: ETONOGESTREL
     Dosage: 68 MG IMLANT; RIGHT ARM;
     Route: 059
     Dates: start: 20141217
  3. PLAQUENIL [Concomitant]
     Active Substance: HYDROXYCHLOROQUINE SULFATE
     Indication: HYPERTENSION
     Dosage: TOTAL DAILY DOSE: 200MG
     Route: 048
     Dates: start: 201405
  4. POTASSIUM CHLORIDE - USP [Concomitant]
     Active Substance: POTASSIUM CHLORIDE
     Indication: RHEUMATOID ARTHRITIS
     Dosage: TOTAL DAILY DOSE: 10MCG
     Route: 048
     Dates: start: 201406
  5. PREDNISONE. [Concomitant]
     Active Substance: PREDNISONE
     Indication: RHEUMATOID ARTHRITIS
     Dosage: TOTAL DAILY DOSE: 5MG
     Route: 048
     Dates: start: 201411, end: 201412
  6. LASIX [Concomitant]
     Active Substance: FUROSEMIDE
     Indication: OEDEMA PERIPHERAL
     Dosage: TOTAL DAILY DOSE: 20MG
     Route: 048
     Dates: start: 201405
  7. NEXPLANON [Suspect]
     Active Substance: ETONOGESTREL
     Indication: CONTRACEPTION
     Dosage: 68 MG IMPLANT;LEFT ARM
     Route: 059
     Dates: start: 20140617, end: 20141215
  8. GABAPENTIN. [Concomitant]
     Active Substance: GABAPENTIN
     Dosage: UNK

REACTIONS (13)
  - Implant site warmth [Unknown]
  - Localised infection [Not Recovered/Not Resolved]
  - Device expulsion [Recovered/Resolved with Sequelae]
  - Skin exfoliation [Not Recovered/Not Resolved]
  - Implant site discharge [Not Recovered/Not Resolved]
  - Implant site infection [Recovered/Resolved]
  - Phlebitis [Not Recovered/Not Resolved]
  - Implant site swelling [Not Recovered/Not Resolved]
  - Implant site reaction [Unknown]
  - Implant site scar [Unknown]
  - Implant site pain [Unknown]
  - Implant site discharge [Unknown]
  - Vaginal infection [Unknown]

NARRATIVE: CASE EVENT DATE: 201409
